FAERS Safety Report 4612027-5 (Version None)
Quarter: 2005Q2

REPORT INFORMATION
  Report Type: 
  Country: None (occurrence: None)
  Receive Date: 20050308
  Receipt Date: 20041130
  Transmission Date: 20051028
  Serious: Yes (Other)
  Sender: FDA-Public Use
  Company Number: 2004UW24514

PATIENT
  Age: 85 Year
  Sex: Female
  Weight: 49.895 kg

DRUGS (3)
  1. CRESTOR [Suspect]
     Indication: HYPERCHOLESTEROLAEMIA
     Dosage: 10 MG QD PO
     Route: 048
  2. CRESTOR [Suspect]
     Indication: HYPERCHOLESTEROLAEMIA
     Dosage: 20 MG QD PO
     Route: 048
  3. COREG [Concomitant]

REACTIONS (3)
  - BACK PAIN [None]
  - HYPOAESTHESIA [None]
  - MUSCLE SPASMS [None]
